FAERS Safety Report 10174453 (Version 1)
Quarter: 2014Q2

REPORT INFORMATION
  Report Type: Spontaneous
  Country: US (occurrence: None)
  Receive Date: 20140514
  Receipt Date: 20140514
  Transmission Date: 20141212
  Serious: Yes (Life-Threatening, Hospitalization)
  Sender: FDA-Public Use
  Company Number: None

PATIENT
  Age: 83 Year
  Sex: Male
  Weight: 97 kg

DRUGS (1)
  1. HEPARIN [Suspect]
     Dosage: 5000 UNITS SQ
     Route: 058
     Dates: start: 20140409, end: 20140418

REACTIONS (3)
  - Deep vein thrombosis [None]
  - Pulmonary embolism [None]
  - Heparin-induced thrombocytopenia [None]
